FAERS Safety Report 24600517 (Version 4)
Quarter: 2025Q3

REPORT INFORMATION
  Report Type: Spontaneous
  Country: JP (occurrence: JP)
  Receive Date: 20241110
  Receipt Date: 20250809
  Transmission Date: 20251021
  Serious: Yes (Death, Hospitalization, Other)
  Sender: ALEXION PHARMACEUTICALS
  Company Number: JP-ASTRAZENECA-240113605_064320_P_1

PATIENT
  Age: 87 Year
  Sex: Male

DRUGS (5)
  1. ANDEXXA [Suspect]
     Active Substance: ANDEXANET ALFA
     Indication: Brain contusion
     Dates: start: 20241019, end: 20241019
  2. EDOXABAN TOSYLATE [Suspect]
     Active Substance: EDOXABAN TOSYLATE
     Indication: Heart valve replacement
  3. EDOXABAN TOSYLATE [Suspect]
     Active Substance: EDOXABAN TOSYLATE
  4. EDOXABAN TOSYLATE [Suspect]
     Active Substance: EDOXABAN TOSYLATE
  5. EDOXABAN TOSYLATE [Suspect]
     Active Substance: EDOXABAN TOSYLATE
     Dosage: 30 MILLIGRAM

REACTIONS (2)
  - Cerebral infarction [Fatal]
  - Brain herniation [Fatal]

NARRATIVE: CASE EVENT DATE: 20241020
